FAERS Safety Report 17994965 (Version 1)
Quarter: 2020Q3

REPORT INFORMATION
  Report Type: Spontaneous
  Country: FR (occurrence: FR)
  Receive Date: 20200708
  Receipt Date: 20200708
  Transmission Date: 20201103
  Serious: Yes (Death)
  Sender: FDA-Public Use
  Company Number: FR-PFIZER INC-2020260269

PATIENT
  Age: 23 Year
  Sex: Female

DRUGS (4)
  1. BACTRIM [Suspect]
     Active Substance: SULFAMETHOXAZOLE\TRIMETHOPRIM
     Indication: OPPORTUNISTIC INFECTION PROPHYLAXIS
     Dosage: UNK
     Dates: start: 20200126
  2. KETAMINE PANPHARMA [Suspect]
     Active Substance: KETAMINE
     Indication: POSTOPERATIVE ANALGESIA
     Dosage: UNK
     Route: 042
     Dates: start: 20200126, end: 20200127
  3. PROPOFOL. [Suspect]
     Active Substance: PROPOFOL
     Indication: SEDATION
     Dosage: UNK
     Route: 042
     Dates: start: 20200122, end: 20200128
  4. SOLU?MEDROL [Suspect]
     Active Substance: METHYLPREDNISOLONE SODIUM SUCCINATE
     Indication: RENAL TRANSPLANT
     Dosage: UNK
     Route: 042
     Dates: start: 20200122, end: 20200131

REACTIONS (5)
  - Anaesthetic complication neurological [Fatal]
  - Agitation [Fatal]
  - Confusional state [Fatal]
  - Impulsive behaviour [Fatal]
  - Hallucination [Fatal]

NARRATIVE: CASE EVENT DATE: 20200129
